FAERS Safety Report 23064479 (Version 1)
Quarter: 2023Q4

REPORT INFORMATION
  Report Type: Spontaneous
  Country: CA (occurrence: CA)
  Receive Date: 20231013
  Receipt Date: 20231013
  Transmission Date: 20240109
  Serious: Yes (Death)
  Sender: FDA-Public Use
  Company Number: CA-FreseniusKabi-FK202315869

PATIENT
  Age: 70 Year
  Sex: Male

DRUGS (4)
  1. DEXTROSE [Suspect]
     Active Substance: DEXTROSE\DEXTROSE MONOHYDRATE
     Indication: Blood chloride increased
     Dosage: DOSAGE FORM: SOLUTION INTRAVENOUS
     Route: 042
  2. SODIUM ACETATE [Suspect]
     Active Substance: SODIUM ACETATE
     Indication: Parenteral nutrition
     Route: 065
  3. AMINO ACIDS\DEXTROSE\ELECTROLYTES NOS [Suspect]
     Active Substance: AMINO ACIDS\DEXTROSE\ELECTROLYTES NOS
     Indication: Parenteral nutrition
     Route: 042
  4. NIACINAMIDE\PYRIDOXINE HYDROCHLORIDE\TYROSINE [Suspect]
     Active Substance: NIACINAMIDE\PYRIDOXINE HYDROCHLORIDE\TYROSINE
     Indication: Parenteral nutrition
     Route: 065

REACTIONS (4)
  - Blood chloride abnormal [Fatal]
  - Gastrointestinal haemorrhage [Fatal]
  - Hyperglycaemia [Fatal]
  - Oedema [Fatal]
